FAERS Safety Report 8716497 (Version 2)
Quarter: 2013Q4

REPORT INFORMATION
  Report Type: Spontaneous
  Country: US (occurrence: US)
  Receive Date: 20120810
  Receipt Date: 20131101
  Transmission Date: 20140711
  Serious: No
  Sender: FDA-Public Use
  Company Number: US-009507513-1208USA001583

PATIENT
  Age: 84 Year
  Sex: Female

DRUGS (2)
  1. ASMANEX TWISTHALER [Suspect]
     Indication: ASTHMA
     Dosage: 1 DF, QPM
     Dates: start: 2007
  2. ZETIA [Concomitant]

REACTIONS (3)
  - Wheezing [Unknown]
  - Drug dose omission [Unknown]
  - Product quality issue [Unknown]
